FAERS Safety Report 21341462 (Version 2)
Quarter: 2022Q3

REPORT INFORMATION
  Report Type: Spontaneous
  Country: US (occurrence: US)
  Receive Date: 20220916
  Receipt Date: 20220921
  Transmission Date: 20221027
  Serious: Yes (Other)
  Sender: FDA-Public Use
  Company Number: US-ORGANON-O2209USA000930

PATIENT
  Age: 25 Year
  Sex: Female

DRUGS (1)
  1. NUVARING [Suspect]
     Active Substance: ETHINYL ESTRADIOL\ETONOGESTREL
     Dosage: 1 RING
     Route: 067
     Dates: start: 20220825, end: 20220825

REACTIONS (5)
  - Device expulsion [Unknown]
  - Device kink [Unknown]
  - Poor quality device used [Unknown]
  - Incorrect product administration duration [Unknown]
  - No adverse event [Unknown]

NARRATIVE: CASE EVENT DATE: 20220825
